FAERS Safety Report 9435058 (Version 1)
Quarter: 2013Q3

REPORT INFORMATION
  Report Type: Spontaneous
  Country: PT (occurrence: None)
  Receive Date: 20130730
  Receipt Date: 20130730
  Transmission Date: 20140515
  Serious: Yes (Life-Threatening)
  Sender: FDA-Public Use
  Company Number: 2013P1012853

PATIENT
  Age: 87 Year
  Sex: Male
  Weight: 71 kg

DRUGS (1)
  1. AMIODARONE [Suspect]
     Indication: VENTRICULAR TACHYCARDIA
     Route: 042
     Dates: start: 20130706, end: 20130708

REACTIONS (5)
  - Ventricular tachycardia [None]
  - Hypotension [None]
  - Renal failure acute [None]
  - Hepatic failure [None]
  - Thrombocytopenia [None]
